FAERS Safety Report 23217646 (Version 1)
Quarter: 2023Q4

REPORT INFORMATION
  Report Type: Spontaneous
  Country: US (occurrence: US)
  Receive Date: 20231122
  Receipt Date: 20231122
  Transmission Date: 20240109
  Serious: Yes (Hospitalization, Other)
  Sender: FDA-Public Use
  Company Number: US-GRANULES-US-2023GRALIT00328

PATIENT
  Age: 74 Year
  Sex: Male

DRUGS (6)
  1. LOSARTAN POTASSIUM [Suspect]
     Active Substance: LOSARTAN POTASSIUM
     Indication: Ejection fraction decreased
     Route: 065
  2. DAPAGLIFLOZIN [Suspect]
     Active Substance: DAPAGLIFLOZIN
     Indication: Ejection fraction decreased
     Route: 065
  3. METOPROLOL [Concomitant]
     Active Substance: METOPROLOL
     Route: 065
  4. DAPTOMYCIN [Concomitant]
     Active Substance: DAPTOMYCIN
     Indication: Product used for unknown indication
     Route: 065
  5. AMPICILLIN SODIUM\SULBACTAM SODIUM [Concomitant]
     Active Substance: AMPICILLIN SODIUM\SULBACTAM SODIUM
     Indication: Product used for unknown indication
     Route: 065
  6. CEFTRIAXONE [Concomitant]
     Active Substance: CEFTRIAXONE\CEFTRIAXONE SODIUM
     Indication: Product used for unknown indication
     Route: 065

REACTIONS (1)
  - Renal tubular necrosis [Unknown]
